FAERS Safety Report 9716868 (Version 1)
Quarter: 2013Q4

REPORT INFORMATION
  Report Type: Not Available
  Country: FR (occurrence: FR)
  Receive Date: 20131127
  Receipt Date: 20131127
  Transmission Date: 20140711
  Serious: Yes (Other)
  Sender: FDA-Public Use
  Company Number: FR-NAPPMUNDI-GBR-2013-0016384

PATIENT
  Age: 43 Year
  Sex: Male

DRUGS (1)
  1. OXYNORM 10 MG, GELULE [Suspect]
     Indication: PAIN
     Dosage: 10 MG, Q4H PRN
     Dates: start: 2010

REACTIONS (7)
  - Drug dependence [Unknown]
  - Drug abuse [Unknown]
  - Anxiety [Unknown]
  - Agitation [Unknown]
  - Gastrointestinal motility disorder [Unknown]
  - Abdominal pain [Unknown]
  - Libido disorder [Unknown]
